FAERS Safety Report 14578204 (Version 1)
Quarter: 2018Q1

REPORT INFORMATION
  Report Type: Report from Study
  Country: ES (occurrence: ES)
  Receive Date: 20180227
  Receipt Date: 20180227
  Transmission Date: 20180509
  Serious: Yes (Other)
  Sender: FDA-Public Use
  Company Number: ES-BAUSCH-BL-2018-005162

PATIENT
  Age: 3 Year
  Sex: Male

DRUGS (5)
  1. DEXAMETASONA [Suspect]
     Active Substance: DEXAMETHASONE
     Indication: ACUTE LYMPHOCYTIC LEUKAEMIA
     Route: 048
  2. ZOVIRAX [Concomitant]
     Active Substance: ACYCLOVIR
     Indication: OPPORTUNISTIC INFECTION PROPHYLAXIS
     Dosage: 400 MG/5 ML SUSPENSION ORAL , ONE BOTTLE OF 200 ML
     Route: 048
     Dates: start: 20170201
  3. DOXORUBICINA [Concomitant]
     Active Substance: DOXORUBICIN HYDROCHLORIDE
     Indication: ACUTE LYMPHOCYTIC LEUKAEMIA
     Dosage: EVERY WEEK
     Route: 042
     Dates: start: 20170725, end: 20170808
  4. VINCRISTINA SULFATO [Concomitant]
     Active Substance: VINCRISTINE SULFATE
     Indication: ACUTE LYMPHOCYTIC LEUKAEMIA
     Dosage: EVERY WEEK
     Route: 042
     Dates: start: 20170725, end: 20170808
  5. SEPTRIN PEDIATRICO [Concomitant]
     Indication: OPPORTUNISTIC INFECTION PROPHYLAXIS
     Dosage: 8 MG/40 MG/ML SUSPENSION ORAL , 1 BOTTLE OF 100 ML
     Route: 048
     Dates: start: 20170201

REACTIONS (1)
  - Adrenal insufficiency [Recovered/Resolved]

NARRATIVE: CASE EVENT DATE: 20170808
